FAERS Safety Report 8212815-2 (Version None)
Quarter: 2012Q1

REPORT INFORMATION
  Report Type: 
  Country: None (occurrence: None)
  Receive Date: 20120315
  Receipt Date: 20120307
  Transmission Date: 20120608
  Serious: Yes (Other)
  Sender: FDA-Public Use
  Company Number: PHHY2012TR019907

PATIENT
  Age: 48 Year
  Sex: Female

DRUGS (11)
  1. CEFTRIAXONE [Suspect]
     Indication: ENDOCARDITIS
  2. GENTAMICIN [Suspect]
     Indication: URINARY TRACT INFECTION
  3. ASPIRIN [Concomitant]
     Dosage: 100 MG, QD
  4. WARFARIN SODIUM [Concomitant]
     Dosage: 5 MG, QD
  5. RIFAMPICIN [Suspect]
     Indication: ENDOCARDITIS
  6. VANCOMYCIN [Suspect]
     Indication: ENDOCARDITIS
  7. METOPROLOL SUCCINATE [Concomitant]
     Dosage: 50 MG, QD
  8. GENTAMICIN [Suspect]
     Indication: ENDOCARDITIS
  9. RIFAMPICIN [Suspect]
     Indication: URINARY TRACT INFECTION
  10. CEFTRIAXONE [Suspect]
     Indication: URINARY TRACT INFECTION
  11. VANCOMYCIN [Suspect]
     Indication: URINARY TRACT INFECTION

REACTIONS (1)
  - RENAL FAILURE ACUTE [None]
